FAERS Safety Report 7257151-6 (Version None)
Quarter: 2011Q1

REPORT INFORMATION
  Report Type: 
  Country: None (occurrence: None)
  Receive Date: 20110129
  Receipt Date: 20100813
  Transmission Date: 20110831
  Serious: No
  Sender: FDA-Public Use
  Company Number: US-ABBOTT-10P-163-0664641-00

PATIENT
  Sex: Male
  Weight: 106.69 kg

DRUGS (3)
  1. AREVA [Concomitant]
     Indication: RHEUMATOID ARTHRITIS
  2. HUMIRA [Suspect]
     Indication: RHEUMATOID ARTHRITIS
  3. ALLEVE [Concomitant]
     Indication: SURGERY

REACTIONS (3)
  - OEDEMA PERIPHERAL [None]
  - DRUG DOSE OMISSION [None]
  - DEVICE MALFUNCTION [None]
